FAERS Safety Report 10364388 (Version 10)
Quarter: 2016Q1

REPORT INFORMATION
  Report Type: Report from Study
  Country: PL (occurrence: PL)
  Receive Date: 20140806
  Receipt Date: 20160317
  Transmission Date: 20160525
  Serious: Yes (Death, Life-Threatening, Hospitalization)
  Sender: FDA-Public Use
  Company Number: PL-ROCHE-CID000000003453606

PATIENT
  Age: 50 Year
  Sex: Male
  Weight: 68 kg

DRUGS (44)
  1. SPORANOX [Concomitant]
     Active Substance: ITRACONAZOLE
     Route: 065
     Dates: start: 20140714, end: 20140729
  2. CAPHOSOL [Concomitant]
     Indication: PROPHYLAXIS
     Route: 065
     Dates: start: 20140714, end: 20140730
  3. SIMVASTATIN. [Concomitant]
     Active Substance: SIMVASTATIN
     Indication: PROPHYLAXIS
     Route: 065
     Dates: start: 20140721, end: 20140723
  4. CIPROFLOXACINUM [Concomitant]
     Route: 065
     Dates: start: 20140721, end: 20140722
  5. HYDROCORTISONUM [Concomitant]
     Active Substance: HYDROCORTISONE
     Route: 065
     Dates: start: 20140626, end: 20140626
  6. GLUCOSE [Concomitant]
     Active Substance: DEXTROSE
     Indication: ENTERITIS INFECTIOUS
     Route: 065
     Dates: start: 20140611, end: 20140611
  7. GLUCOSE [Concomitant]
     Active Substance: DEXTROSE
     Route: 065
     Dates: start: 20140616, end: 20140616
  8. GLUCOSE [Concomitant]
     Active Substance: DEXTROSE
     Route: 065
     Dates: start: 20140618, end: 20140618
  9. GLUCOSE [Concomitant]
     Active Substance: DEXTROSE
     Route: 065
     Dates: start: 20140630
  10. CO-PRESTARIUM [Concomitant]
     Active Substance: AMLODIPINE\PERINDOPRIL
     Indication: HYPERTENSION
  11. LOPERAMIDE HYDROCHLORIDE. [Concomitant]
     Active Substance: LOPERAMIDE HYDROCHLORIDE
     Route: 065
     Dates: start: 20140709, end: 20140713
  12. ONDANSETRONUM [Concomitant]
     Indication: PROPHYLAXIS
     Route: 065
     Dates: start: 20140605, end: 20140605
  13. NIFUROXAZIDUM [Concomitant]
     Route: 065
     Dates: start: 20140630
  14. GLUCOSE [Concomitant]
     Active Substance: DEXTROSE
     Route: 065
     Dates: start: 20140721, end: 20140730
  15. FILGRASTIM [Concomitant]
     Active Substance: FILGRASTIM
     Route: 065
     Dates: start: 20140709, end: 20140709
  16. CYCLOPHOSPHAMIDE. [Suspect]
     Active Substance: CYCLOPHOSPHAMIDE
     Indication: DIFFUSE LARGE B-CELL LYMPHOMA
     Dosage: DATE OF MOST RECENT DOSE (1419.34 MG) OF CYCLOPHOSPHAMIDE PRIOR TO AE ONSET: 26/JUN/2014
     Route: 042
     Dates: start: 20140130
  17. VINCRISTINE [Suspect]
     Active Substance: VINCRISTINE
     Indication: DIFFUSE LARGE B-CELL LYMPHOMA
     Dosage: DATE OF MOST RECENT DOSE (2 MG) OF VINCRISTINE PRIOR TO AE ONSET: 26/JUN/2014
     Route: 040
     Dates: start: 20140130
  18. PARACETAMOL [Concomitant]
     Active Substance: ACETAMINOPHEN
     Route: 065
     Dates: start: 20140626, end: 20140626
  19. ONDANSETRONUM [Concomitant]
     Route: 065
     Dates: start: 20140626, end: 20140626
  20. FILGRASTIM [Concomitant]
     Active Substance: FILGRASTIM
     Route: 065
     Dates: start: 20140714, end: 20140714
  21. COAXIL [Concomitant]
     Indication: PROPHYLAXIS
     Route: 065
     Dates: start: 20140714, end: 20140720
  22. PREDNISONE. [Suspect]
     Active Substance: PREDNISONE
     Indication: DIFFUSE LARGE B-CELL LYMPHOMA
     Dosage: DATE OF MOST RECENT DOSE (100 MG) OF PREDNISONE/PREDNISOLONE/METHYLPREDNISOLONE PRIOR TO AE ONSET: 3
     Route: 048
     Dates: start: 20140130
  23. GLUCOSE [Concomitant]
     Active Substance: DEXTROSE
     Route: 065
     Dates: start: 20140702, end: 20140706
  24. METRONIDAZOLUM [Concomitant]
     Route: 065
     Dates: start: 20140707, end: 20140708
  25. LOPERAMIDE HYDROCHLORIDE. [Concomitant]
     Active Substance: LOPERAMIDE HYDROCHLORIDE
     Indication: ENTERITIS INFECTIOUS
     Route: 065
     Dates: start: 20140528, end: 20140603
  26. CIPROFLOXACINUM [Concomitant]
     Indication: ENTERITIS INFECTIOUS
     Route: 065
     Dates: start: 20140528, end: 20140603
  27. HYDROCORTISONUM [Concomitant]
     Active Substance: HYDROCORTISONE
     Indication: PREMEDICATION
     Route: 065
     Dates: start: 20140605, end: 20140605
  28. TAZOCIN [Concomitant]
     Active Substance: PIPERACILLIN SODIUM\TAZOBACTAM SODIUM
     Route: 065
     Dates: start: 20140722, end: 20140727
  29. OBINUTUZUMAB [Suspect]
     Active Substance: OBINUTUZUMAB
     Indication: DIFFUSE LARGE B-CELL LYMPHOMA
     Dosage: MOST RECENT DOSE PRIOR TO ONSET OF ADVERSE EVENT: 26/JUN/2014, LAST VOLUME TAKEN 250ML AND DOSE CONC
     Route: 042
     Dates: start: 20140130
  30. PARACETAMOL [Concomitant]
     Active Substance: ACETAMINOPHEN
     Indication: PREMEDICATION
     Route: 065
     Dates: start: 20140605, end: 20140605
  31. CLEMASTINUM [Concomitant]
     Indication: PREMEDICATION
     Route: 065
     Dates: start: 20140605, end: 20140605
  32. NIFUROXAZIDUM [Concomitant]
     Route: 065
     Dates: start: 20140611, end: 20140623
  33. FILGRASTIM [Concomitant]
     Active Substance: FILGRASTIM
     Indication: NEUTROPENIA
     Route: 065
     Dates: start: 20140616, end: 20140620
  34. HEPATIL [Concomitant]
     Route: 065
     Dates: start: 20140721, end: 20140724
  35. DOXORUBICIN [Suspect]
     Active Substance: DOXORUBICIN
     Indication: DIFFUSE LARGE B-CELL LYMPHOMA
     Dosage: DATE OF MOST RECENT DOSE (94.62 MG) OF DOXORUBICIN PRIOR TO AE ONSET: 26/JUN/2014
     Route: 042
     Dates: start: 20140130
  36. PANTOPRAZOLUM [Concomitant]
     Indication: PROPHYLAXIS
     Route: 065
     Dates: start: 20140220
  37. CIPROFLOXACINUM [Concomitant]
     Route: 065
     Dates: start: 20140616, end: 20140623
  38. FLUCONAZOLUM [Concomitant]
     Indication: ENTERITIS INFECTIOUS
     Route: 065
     Dates: start: 20140528, end: 20140603
  39. FLUCONAZOLUM [Concomitant]
     Route: 065
     Dates: start: 20140616, end: 20140623
  40. CLEMASTINUM [Concomitant]
     Route: 065
     Dates: start: 20140626, end: 20140626
  41. NIFUROXAZIDUM [Concomitant]
     Indication: ENTERITIS INFECTIOUS
     Route: 065
     Dates: start: 20140528, end: 20140603
  42. GLUCOSE [Concomitant]
     Active Substance: DEXTROSE
     Route: 065
     Dates: start: 20140711, end: 20140720
  43. FILGRASTIM [Concomitant]
     Active Substance: FILGRASTIM
     Route: 065
     Dates: start: 20140702, end: 20140706
  44. HEPATIL [Concomitant]
     Indication: PROPHYLAXIS
     Route: 065
     Dates: start: 20140714, end: 20140715

REACTIONS (4)
  - Neutropenia [Recovered/Resolved]
  - Haemorrhage [Fatal]
  - Histiocytosis haematophagic [Fatal]
  - Intestinal perforation [Recovered/Resolved with Sequelae]

NARRATIVE: CASE EVENT DATE: 20140702
